FAERS Safety Report 6419703-2 (Version None)
Quarter: 2009Q4

REPORT INFORMATION
  Report Type: 
  Country: None (occurrence: None)
  Receive Date: 20091029
  Receipt Date: 20091027
  Transmission Date: 20100525
  Serious: Yes (Hospitalization)
  Sender: FDA-Public Use
  Company Number: B0600293A

PATIENT
  Sex: Female
  Weight: 67 kg

DRUGS (4)
  1. TOPOTECAN [Suspect]
     Dosage: 2.52MG EVERY 3 WEEKS
     Route: 058
     Dates: start: 20090831
  2. ALIZAPRIDE [Concomitant]
     Indication: NAUSEA
     Dosage: 50MG AS REQUIRED
     Dates: start: 20090831
  3. ESCITALOPRAM [Concomitant]
     Indication: DEPRESSION
     Route: 048
     Dates: start: 20090827
  4. PEGFILGRASTIM [Concomitant]
     Indication: PROPHYLAXIS
     Route: 058
     Dates: start: 20090906, end: 20090906

REACTIONS (7)
  - ASTHENIA [None]
  - DEHYDRATION [None]
  - DIARRHOEA [None]
  - HYPOTENSION [None]
  - NAUSEA [None]
  - TACHYCARDIA [None]
  - VOMITING [None]
